FAERS Safety Report 4775161-5 (Version None)
Quarter: 2005Q3

REPORT INFORMATION
  Report Type: 
  Country: None (occurrence: None)
  Receive Date: 20050921
  Receipt Date: 20050901
  Transmission Date: 20060218
  Serious: Yes (Death)
  Sender: FDA-Public Use
  Company Number: CH-MERCK-0509CHE00003

PATIENT
  Age: 50 Year
  Sex: Male
  Weight: 80 kg

DRUGS (1)
  1. ZETIA [Suspect]
     Route: 048
     Dates: start: 20050101, end: 20050101

REACTIONS (1)
  - ROAD TRAFFIC ACCIDENT [None]
